FAERS Safety Report 5761794-6 (Version None)
Quarter: 2008Q2

REPORT INFORMATION
  Report Type: 
  Country: None (occurrence: None)
  Receive Date: 20080603
  Receipt Date: 20080513
  Transmission Date: 20081010
  Serious: Yes (Other)
  Sender: FDA-Public Use
  Company Number: MK-6033876

PATIENT
  Age: 38 Year
  Sex: Female

DRUGS (8)
  1. ISOTRETINOIN [Suspect]
     Indication: DRUG USE FOR UNKNOWN INDICATION
     Dosage: MG; TWICE A DAY; ORAL, MG; DAILY; ORAL
     Route: 048
     Dates: start: 20061129, end: 20070330
  2. ISOTRETINOIN [Suspect]
     Indication: DRUG USE FOR UNKNOWN INDICATION
     Dosage: MG; TWICE A DAY; ORAL, MG; DAILY; ORAL
     Route: 048
     Dates: start: 20061129, end: 20070330
  3. ZOFRAN [Concomitant]
  4. PROZAC /00724401/ [Concomitant]
  5. LAMICTAL [Concomitant]
  6. PHENERGAN /00033001/ [Concomitant]
  7. REGLAN [Concomitant]
  8. PRENATAL VITAMINS /01549301/ [Concomitant]

REACTIONS (4)
  - DRUG EXPOSURE DURING PREGNANCY [None]
  - FOETAL HEART RATE ABNORMAL [None]
  - PERINEAL LACERATION [None]
  - PREGNANCY [None]
